FAERS Safety Report 21793994 (Version 1)
Quarter: 2022Q4

REPORT INFORMATION
  Report Type: Spontaneous
  Country: TH (occurrence: TH)
  Receive Date: 20221229
  Receipt Date: 20221229
  Transmission Date: 20230113
  Serious: Yes (Death)
  Sender: FDA-Public Use
  Company Number: TH-PFIZER INC-PV202200132176

PATIENT
  Age: 68 Year
  Sex: Female

DRUGS (2)
  1. FLUCONAZOLE [Suspect]
     Active Substance: FLUCONAZOLE
     Indication: Fungal peritonitis
     Dosage: 200 MG, DAILY
  2. FLUCONAZOLE [Suspect]
     Active Substance: FLUCONAZOLE
     Indication: Candida infection

REACTIONS (1)
  - Drug ineffective [Fatal]
